FAERS Safety Report 9159264 (Version 1)
Quarter: 2013Q1

REPORT INFORMATION
  Report Type: Spontaneous
  Country: US (occurrence: None)
  Receive Date: 20130212
  Receipt Date: 20130212
  Transmission Date: 20140127
  Serious: Yes (Other)
  Sender: FDA-Public Use
  Company Number: 001475978A

PATIENT
  Sex: Male

DRUGS (5)
  1. PROACTIV RENEWING CLEANSER [Suspect]
  2. PROACTIV REPAIRING TREATMENT [Suspect]
  3. PROACTIV DEEP CLEANSING WASH [Suspect]
     Dates: start: 20130120
  4. PROACTIV DEEP CLEANSING WASH [Suspect]
     Dates: start: 20130120
  5. PROACTIV DEEP CLEANSING WASH [Suspect]
     Dates: start: 20130120

REACTIONS (4)
  - Dyspnoea [None]
  - Swelling face [None]
  - Local swelling [None]
  - Local swelling [None]
